FAERS Safety Report 13965918 (Version 1)
Quarter: 2017Q3

REPORT INFORMATION
  Report Type: Spontaneous
  Country: US (occurrence: US)
  Receive Date: 20170913
  Receipt Date: 20170913
  Transmission Date: 20171128
  Serious: Yes (Hospitalization)
  Sender: FDA-Public Use
  Company Number: US-MYLANLABS-2017M1056511

PATIENT
  Age: 56 Year
  Sex: Male

DRUGS (1)
  1. RIFAMPICIN [Suspect]
     Active Substance: RIFAMPIN
     Indication: LATENT TUBERCULOSIS
     Dosage: UNK
     Route: 065

REACTIONS (2)
  - Pancytopenia [Unknown]
  - Aplastic anaemia [Unknown]
